FAERS Safety Report 13110420 (Version 1)
Quarter: 2017Q1

REPORT INFORMATION
  Report Type: Spontaneous
  Country: US (occurrence: US)
  Receive Date: 20170112
  Receipt Date: 20170112
  Transmission Date: 20170428
  Serious: Yes (Hospitalization)
  Sender: FDA-Public Use
  Company Number: US-ROCHE-1180286

PATIENT
  Age: 11 Year
  Sex: Female

DRUGS (18)
  1. DORNASE ALFA [Suspect]
     Active Substance: DORNASE ALFA
     Indication: RESPIRATORY DISTRESS
  2. SODIUM CHLORIDE. [Suspect]
     Active Substance: SODIUM CHLORIDE
     Indication: FIBRINOUS BRONCHITIS
  3. ACETYLCYSTEINE. [Suspect]
     Active Substance: ACETYLCYSTEINE
     Indication: ATELECTASIS
     Dosage: INHAL
     Route: 065
  4. AZITHROMYCIN ANHYDROUS. [Suspect]
     Active Substance: AZITHROMYCIN ANHYDROUS
     Indication: ATELECTASIS
     Route: 065
  5. ALTEPLASE [Suspect]
     Active Substance: ALTEPLASE
     Indication: FIBRINOUS BRONCHITIS
  6. DORNASE ALFA [Suspect]
     Active Substance: DORNASE ALFA
     Indication: FIBRINOUS BRONCHITIS
  7. ACETYLCYSTEINE. [Suspect]
     Active Substance: ACETYLCYSTEINE
     Indication: RESPIRATORY DISTRESS
  8. AZITHROMYCIN ANHYDROUS. [Suspect]
     Active Substance: AZITHROMYCIN ANHYDROUS
     Indication: RESPIRATORY DISTRESS
  9. BOSENTAN. [Suspect]
     Active Substance: BOSENTAN
     Indication: FIBRINOUS BRONCHITIS
  10. BOSENTAN. [Suspect]
     Active Substance: BOSENTAN
     Indication: RESPIRATORY DISTRESS
  11. ALTEPLASE [Suspect]
     Active Substance: ALTEPLASE
     Indication: RESPIRATORY DISTRESS
  12. DORNASE ALFA [Suspect]
     Active Substance: DORNASE ALFA
     Indication: ATELECTASIS
     Dosage: INHAL
     Route: 065
  13. ACETYLCYSTEINE. [Suspect]
     Active Substance: ACETYLCYSTEINE
     Indication: FIBRINOUS BRONCHITIS
  14. BOSENTAN. [Suspect]
     Active Substance: BOSENTAN
     Indication: ATELECTASIS
     Route: 065
  15. SODIUM CHLORIDE. [Suspect]
     Active Substance: SODIUM CHLORIDE
     Indication: ATELECTASIS
     Dosage: INHAL
     Route: 065
  16. AZITHROMYCIN ANHYDROUS. [Suspect]
     Active Substance: AZITHROMYCIN ANHYDROUS
     Indication: FIBRINOUS BRONCHITIS
  17. ALTEPLASE [Suspect]
     Active Substance: ALTEPLASE
     Indication: ATELECTASIS
     Dosage: INHAL
     Route: 065
  18. SODIUM CHLORIDE. [Suspect]
     Active Substance: SODIUM CHLORIDE
     Indication: RESPIRATORY DISTRESS

REACTIONS (1)
  - Drug ineffective [Unknown]
